FAERS Safety Report 7463319-6 (Version None)
Quarter: 2011Q2

REPORT INFORMATION
  Report Type: 
  Country: None (occurrence: None)
  Receive Date: 20110506
  Receipt Date: 20110427
  Transmission Date: 20111010
  Serious: Yes (Death)
  Sender: FDA-Public Use
  Company Number: MA-WATSON-2011-04886

PATIENT
  Age: 50 Year
  Sex: Female

DRUGS (4)
  1. PREDNISONE [Suspect]
     Indication: VASCULITIS
     Dosage: DECREASED TO 10 MG, DAILY
     Route: 065
  2. PREDNISONE [Suspect]
     Dosage: 60  MG, DAILY
     Route: 065
  3. METHYLPREDNISOLONE ACETATE [Suspect]
     Indication: VASCULITIS
     Dosage: PULSE THERAPY SINGLE DOSE
  4. CYCLOPHOSPHAMIDE [Suspect]
     Indication: VASCULITIS
     Dosage: UNK

REACTIONS (2)
  - KAPOSI'S SARCOMA [None]
  - DISSEMINATED INTRAVASCULAR COAGULATION [None]
